FAERS Safety Report 5860557-0 (Version None)
Quarter: 2008Q3

REPORT INFORMATION
  Report Type: 
  Country: None (occurrence: None)
  Receive Date: 20080827
  Receipt Date: 20070903
  Transmission Date: 20090109
  Serious: No
  Sender: FDA-Public Use
  Company Number: US-ABBOTT-07P-163-0416164-00

PATIENT
  Sex: Female
  Weight: 49.94 kg

DRUGS (10)
  1. NIASPAN [Suspect]
     Indication: BLOOD CHOLESTEROL
     Dates: start: 20050101, end: 20070904
  2. NIASPAN [Suspect]
     Dates: start: 20070904
  3. ASPIRIN [Concomitant]
     Indication: PROPHYLAXIS
     Dates: start: 20070901
  4. ASPIRIN [Concomitant]
     Indication: ADVERSE DRUG REACTION
  5. LEVOTHYROXINE SODIUM [Concomitant]
     Indication: HYPOTHYROIDISM
  6. CLOPIDOGREL [Concomitant]
     Indication: ANTICOAGULANT THERAPY
  7. VALSARTAN [Concomitant]
     Indication: BLOOD PRESSURE
  8. ESOMEPRAZOLE MAGNESIUM [Concomitant]
     Indication: GASTROOESOPHAGEAL REFLUX DISEASE
  9. ANASTROZOLE [Concomitant]
     Indication: BREAST CANCER
  10. LORAZEPAM [Concomitant]
     Indication: ANXIETY

REACTIONS (3)
  - ERYTHEMA [None]
  - FLUSHING [None]
  - PRURITUS [None]
